FAERS Safety Report 7234329-9 (Version None)
Quarter: 2011Q1

REPORT INFORMATION
  Report Type: 
  Country: None (occurrence: None)
  Receive Date: 20110119
  Receipt Date: 20110110
  Transmission Date: 20110831
  Serious: Yes (Other)
  Sender: FDA-Public Use
  Company Number: FI-PFIZER INC-2011011841

PATIENT
  Age: 45 Year
  Sex: Female

DRUGS (1)
  1. SOMAC [Suspect]
     Indication: GASTROOESOPHAGEAL REFLUX DISEASE
     Dosage: 40 MG, 1X/DAY
     Dates: start: 20100501, end: 20101222

REACTIONS (1)
  - ARRHYTHMIA [None]
